FAERS Safety Report 16430224 (Version 5)
Quarter: 2020Q3

REPORT INFORMATION
  Report Type: Report from Study
  Country: US (occurrence: US)
  Receive Date: 20190614
  Receipt Date: 20200921
  Transmission Date: 20201102
  Serious: Yes (Hospitalization, Other)
  Sender: FDA-Public Use
  Company Number: US-AMGEN-USASL2019081192

PATIENT
  Age: 79 Year
  Sex: Female

DRUGS (6)
  1. REPATHA [Suspect]
     Active Substance: EVOLOCUMAB
     Indication: HYPERLIPIDAEMIA
  2. NORVASC [Concomitant]
     Active Substance: AMLODIPINE BESYLATE
     Dosage: 5 MILLIGRAM, QD
     Route: 065
     Dates: start: 20190516
  3. REPATHA [Suspect]
     Active Substance: EVOLOCUMAB
     Indication: HYPERCHOLESTEROLAEMIA
     Dosage: 140 MILLIGRAM, Q2WK
     Route: 065
     Dates: start: 20170817
  4. REPATHA [Suspect]
     Active Substance: EVOLOCUMAB
     Indication: LOW DENSITY LIPOPROTEIN INCREASED
     Dosage: UNK
     Route: 065
     Dates: end: 2020
  5. REPATHA [Suspect]
     Active Substance: EVOLOCUMAB
     Indication: BLOOD CHOLESTEROL ABNORMAL
     Dosage: UNK
     Route: 065
  6. HCTZ [Concomitant]
     Active Substance: HYDROCHLOROTHIAZIDE
     Dosage: 12.5 MILLIGRAM, QD
     Route: 065
     Dates: start: 20190516

REACTIONS (20)
  - Secretion discharge [Not Recovered/Not Resolved]
  - Urinary tract infection [Unknown]
  - Dysphonia [Not Recovered/Not Resolved]
  - Oropharyngeal pain [Unknown]
  - Arthralgia [Unknown]
  - Joint injury [Unknown]
  - Haemorrhoids [Unknown]
  - Cough [Unknown]
  - Injection site bruising [Unknown]
  - Gastric disorder [Unknown]
  - Road traffic accident [Unknown]
  - Blood potassium decreased [Unknown]
  - Head injury [Unknown]
  - Dehydration [Unknown]
  - Syncope [Unknown]
  - Lethargy [Not Recovered/Not Resolved]
  - Dry mouth [Unknown]
  - Dyspepsia [Unknown]
  - Feeling abnormal [Not Recovered/Not Resolved]
  - Hypertension [Unknown]

NARRATIVE: CASE EVENT DATE: 201805
